FAERS Safety Report 8587092-3 (Version None)
Quarter: 2012Q3

REPORT INFORMATION
  Report Type: 
  Country: None (occurrence: None)
  Receive Date: 20120810
  Receipt Date: 20120807
  Transmission Date: 20120928
  Serious: Yes (Life-Threatening, Hospitalization)
  Sender: FDA-Public Use
  Company Number: US-B.I. PHARMACEUTICALS,INC./RIDGEFIELD-2012-BP-14702BP

PATIENT
  Sex: Female
  Weight: 82.55 kg

DRUGS (3)
  1. PRADAXA [Suspect]
     Indication: THROMBOCYTOPENIC PURPURA
  2. ASPIRIN [Concomitant]
     Indication: TRANSIENT ISCHAEMIC ATTACK
  3. PRADAXA [Suspect]
     Indication: ATRIAL FIBRILLATION
     Dosage: 300 MG
     Route: 048
     Dates: start: 20120214, end: 20120620

REACTIONS (1)
  - GASTROINTESTINAL HAEMORRHAGE [None]
